FAERS Safety Report 7332360-6 (Version None)
Quarter: 2011Q1

REPORT INFORMATION
  Report Type: 
  Country: None (occurrence: None)
  Receive Date: 20110222
  Receipt Date: 20110209
  Transmission Date: 20110831
  Serious: Yes (Hospitalization)
  Sender: FDA-Public Use
  Company Number: 014055

PATIENT
  Age: 87 Year
  Sex: Male
  Weight: 42 kg

DRUGS (1)
  1. PEGAPTANIB SODIUM, PLACEBO [Suspect]
     Indication: DIABETIC RETINAL OEDEMA

REACTIONS (1)
  - INGUINAL HERNIA [None]
